FAERS Safety Report 14884882 (Version 1)
Quarter: 2018Q2

REPORT INFORMATION
  Report Type: Spontaneous
  Country: US (occurrence: US)
  Receive Date: 20180511
  Receipt Date: 20180511
  Transmission Date: 20180711
  Serious: No
  Sender: FDA-Public Use
  Company Number: US-009507513-1805USA004349

PATIENT
  Sex: Female
  Weight: 49.89 kg

DRUGS (1)
  1. NEXPLANON [Suspect]
     Active Substance: ETONOGESTREL
     Indication: CONTRACEPTION
     Dosage: 1 DF, ^4 YEARS^, LEFT ARM
     Route: 059
     Dates: start: 20160118

REACTIONS (6)
  - Decreased appetite [Unknown]
  - Circumstance or information capable of leading to medication error [Unknown]
  - Vaginal infection [Unknown]
  - Headache [Unknown]
  - Vaginal haemorrhage [Unknown]
  - Weight decreased [Unknown]
